FAERS Safety Report 7535206-6 (Version None)
Quarter: 2011Q2

REPORT INFORMATION
  Report Type: 
  Country: None (occurrence: None)
  Receive Date: 20110609
  Receipt Date: 20090413
  Transmission Date: 20111010
  Serious: Yes (Other)
  Sender: FDA-Public Use
  Company Number: PHHY2009MX12361

PATIENT
  Age: 46 Year
  Sex: Female

DRUGS (1)
  1. TEGRETOL [Suspect]
     Indication: EPILEPSY
     Dosage: 200 MG, (4 TABLETS TOTAL 200 MG)
     Route: 048
     Dates: start: 20060201

REACTIONS (4)
  - GRAND MAL CONVULSION [None]
  - FOOT FRACTURE [None]
  - JOINT DISLOCATION [None]
  - FALL [None]
